FAERS Safety Report 9487166 (Version 1)
Quarter: 2013Q3

REPORT INFORMATION
  Report Type: Spontaneous
  Country: BR (occurrence: BR)
  Receive Date: 20130829
  Receipt Date: 20130829
  Transmission Date: 20140515
  Serious: Yes (Hospitalization, Other)
  Sender: FDA-Public Use
  Company Number: BR-BRISTOL-MYERS SQUIBB COMPANY-19211044

PATIENT
  Age: 60 Year
  Sex: Female
  Weight: 75 kg

DRUGS (2)
  1. YERVOY [Suspect]
     Indication: MALIGNANT MELANOMA
     Dosage: RECIEVED 2ND,3RD + 4TH DOSE OF 3 MG/KG OF YERVOY.
     Route: 042
     Dates: start: 201305
  2. ZOMETA [Concomitant]

REACTIONS (2)
  - Thrombocytopenia [Unknown]
  - Epistaxis [Unknown]
